FAERS Safety Report 6233673-1 (Version None)
Quarter: 2009Q2

REPORT INFORMATION
  Report Type: 
  Country: None (occurrence: None)
  Receive Date: 20090612
  Receipt Date: 20090604
  Transmission Date: 20091009
  Serious: Yes (Other)
  Sender: FDA-Public Use
  Company Number: SPV1-2009-01155

PATIENT
  Age: 62 Year
  Sex: Male
  Weight: 96 kg

DRUGS (7)
  1. FOSRENOL [Suspect]
     Indication: HYPERPHOSPHATAEMIA
     Dosage: 750 MG, 3X/DAY:TID, ORAL
     Route: 048
     Dates: start: 20090516, end: 20090523
  2. AMLODIPINE [Concomitant]
  3. NOBITEN (NEBIVOLOL) [Concomitant]
  4. ACETYLSALICYLIC ACID SRT [Concomitant]
  5. BUMETANIDE [Concomitant]
  6. CALCIUM CARBONATE (CALCIUM CARBONATE) [Concomitant]
  7. CETIRIZINE HCL [Concomitant]

REACTIONS (2)
  - CONDITION AGGRAVATED [None]
  - PSORIASIS [None]
